FAERS Safety Report 7948986-2 (Version None)
Quarter: 2011Q4

REPORT INFORMATION
  Report Type: 
  Country: None (occurrence: None)
  Receive Date: 20111130
  Receipt Date: 20111123
  Transmission Date: 20120403
  Serious: Yes (Hospitalization, Other)
  Sender: FDA-Public Use
  Company Number: SE-PFIZER INC-2011286541

PATIENT
  Age: 63 Year
  Sex: Male

DRUGS (7)
  1. OMEPRAZOLE [Concomitant]
     Dosage: UNK
  2. ALCOHOL [Interacting]
     Dosage: ONE GLASS
     Dates: start: 20111004
  3. SIMVASTATIN [Concomitant]
     Dosage: UNK
  4. PRAMIPEXOLE DIHYDROCHLORIDE [Concomitant]
     Dosage: UNK
  5. NICOTINE [Concomitant]
     Dosage: UNK
  6. VIAGRA [Suspect]
     Indication: PSYCHOSOMATIC DISEASE
     Dosage: 50 MG, AS NEEDED
     Route: 048
     Dates: start: 20111004
  7. ASPIRIN [Concomitant]
     Dosage: UNK

REACTIONS (2)
  - SYNCOPE [None]
  - ALCOHOL INTERACTION [None]
